FAERS Safety Report 21440984 (Version 2)
Quarter: 2025Q4

REPORT INFORMATION
  Report Type: Report from Study
  Country: US (occurrence: US)
  Receive Date: 20221011
  Receipt Date: 20251205
  Transmission Date: 20260119
  Serious: Yes (Other)
  Sender: ALEXION PHARMACEUTICALS
  Company Number: 2022A291734

PATIENT
  Age: 82 Year
  Sex: Female
  Weight: 75.9 kg

DRUGS (20)
  1. CALQUENCE [Suspect]
     Active Substance: ACALABRUTINIB
     Dosage: 100 MILLIGRAM, BID
     Dates: start: 20220804
  2. OMEPRAZOLE [Suspect]
     Active Substance: OMEPRAZOLE
     Dosage: 40 MILLIGRAM, QD
  3. ALLOPURINOL [Concomitant]
     Active Substance: ALLOPURINOL
     Dosage: 300 MILLIGRAM, QD
  4. AMLODIPINE [Concomitant]
     Active Substance: AMLODIPINE BESYLATE
     Dosage: 5 MILLIGRAM, QD
  5. ASCORBIC ACID [Concomitant]
     Active Substance: ASCORBIC ACID
     Dosage: 1000 MILLIGRAM, QD
  6. CHOLECALCIFEROL [Concomitant]
     Active Substance: CHOLECALCIFEROL
     Dosage: 125 MCG (5000 UNITS) ,TAKE 5000 UNITS BY MOUTH ONCE A WEEK
  7. ASPIRIN [Concomitant]
     Active Substance: ASPIRIN
     Dosage: 81 MILLIGRAM, QD
  8. CICLOPIROX [Concomitant]
     Active Substance: CICLOPIROX
     Dosage: 8 % SOLUTION
     Route: 065
  9. FERROUS SULFATE [Concomitant]
     Active Substance: FERROUS SULFATE
     Dosage: 525 MILLIGRAM, TID
  10. IBUPROFEN [Concomitant]
     Active Substance: IBUPROFEN
     Dosage: 800 MILLIGRAM, TID
  11. INSULIN ASPART [Concomitant]
     Active Substance: INSULIN ASPART
     Dosage: 100 UNIT/ML SOCT,INJECT 100 UNITS UNDER THE SKIN DAILY WITH DINNER BEFORE
     Route: 065
  12. LANTUS [Concomitant]
     Active Substance: INSULIN GLARGINE
     Dosage: 100 UNIT/ML INJECTION VIAL ,INJECT 30 UNITS UNDER THE SKIN AT BEDTIME
     Route: 065
  13. IRBESARTAN [Concomitant]
     Active Substance: IRBESARTAN
     Dosage: 150 MILLIGRAM, QD
  14. KETOROLAC [Concomitant]
     Active Substance: KETOROLAC TROMETHAMINE
     Dosage: 0.4 % OPTHALMIC SOLUTION,PLACE ONE DROP INTO THE RIGHT EYE
     Route: 065
  15. METFORMIN [Concomitant]
     Active Substance: METFORMIN HYDROCHLORIDE
     Dosage: 1000 MILLIGRAM, BID
  16. OMEPRAZOLE [Concomitant]
     Active Substance: OMEPRAZOLE
     Dosage: 40 MILLIGRAM, QD
  17. PAROXETINE [Concomitant]
     Active Substance: PAROXETINE
     Dosage: 20 MILLIGRAM, QD
  18. PRAVASTATIN [Concomitant]
     Active Substance: PRAVASTATIN
     Dosage: 40 MILLIGRAM, QD
  19. VITAMIN B COMPLEX [Concomitant]
     Active Substance: CYANOCOBALAMIN\DEXPANTHENOL\NIACINAMIDE\PYRIDOXINE HYDROCHLORIDE\RIBOFLAVIN 5^-PHOSPHATE SODIUM\THIA
     Dosage: 1 DOSAGE FORM, QD
  20. VITAMIN E [Concomitant]
     Active Substance: .ALPHA.-TOCOPHEROL
     Dosage: 180 MILLIGRAM, QD

REACTIONS (15)
  - Anaemia [Unknown]
  - Leukocytosis [Unknown]
  - Blood uric acid increased [Unknown]
  - Essential hypertension [Unknown]
  - Dyslipidaemia [Unknown]
  - Marrow hyperplasia [Unknown]
  - Type 2 diabetes mellitus [Unknown]
  - Toxicity to various agents [Unknown]
  - Diarrhoea [Unknown]
  - Fatigue [Unknown]
  - Serum ferritin decreased [Unknown]
  - Dyspnoea [Unknown]
  - Obesity [Unknown]
  - Snoring [Unknown]
  - Somnolence [Unknown]
